FAERS Safety Report 17578352 (Version 5)
Quarter: 2020Q2

REPORT INFORMATION
  Report Type: Report from Study
  Country: US (occurrence: US)
  Receive Date: 20200324
  Receipt Date: 20200423
  Transmission Date: 20200713
  Serious: Yes (Other)
  Sender: FDA-Public Use
  Company Number: NVSC2020US080816

PATIENT
  Age: 66 Year
  Sex: Female

DRUGS (18)
  1. SERTRALINE [Concomitant]
     Active Substance: SERTRALINE HYDROCHLORIDE
     Indication: DEPRESSION
     Dosage: 75 MG, QD
     Route: 048
     Dates: start: 20140619
  2. FLONASE [Concomitant]
     Active Substance: FLUTICASONE PROPIONATE
     Indication: SEASONAL ALLERGY
     Dosage: 50 UG, QD
     Route: 006
     Dates: start: 20090114
  3. ACTIVELLA [Concomitant]
     Active Substance: ESTRADIOL\NORETHINDRONE ACETATE
     Indication: OESTROGEN THERAPY
     Dosage: 0.5-1 MG QD
     Route: 048
     Dates: start: 20160112
  4. MAGNESIUM [Concomitant]
     Active Substance: MAGNESIUM
     Indication: OCULAR DISCOMFORT
     Dosage: 250 MG, QD
     Route: 048
     Dates: start: 20160330
  5. TYLENOL [Concomitant]
     Active Substance: ACETAMINOPHEN
     Indication: PRODUCT USED FOR UNKNOWN INDICATION
     Dosage: 500 MG, PRN
     Route: 048
     Dates: start: 20150408
  6. AMPYRA [Concomitant]
     Active Substance: DALFAMPRIDINE
     Indication: MULTIPLE SCLEROSIS
     Dosage: 10 MG, Q12H
     Route: 048
     Dates: start: 20100625
  7. MAYZENT [Suspect]
     Active Substance: SIPONIMOD
     Indication: MULTIPLE SCLEROSIS
     Dosage: UNK
     Route: 048
     Dates: start: 20150409, end: 20160302
  8. CENTRUM [Concomitant]
     Active Substance: VITAMINS
     Indication: PROPHYLAXIS
     Dosage: 1 TABLET, QD
     Route: 048
     Dates: start: 20100625
  9. BAF312 [Suspect]
     Active Substance: SIPONIMOD
     Indication: MULTIPLE SCLEROSIS
     Dosage: 2 MG
     Route: 048
     Dates: start: 20160704, end: 20200104
  10. CYANOCOBALAMIN. [Concomitant]
     Active Substance: CYANOCOBALAMIN
     Indication: PROPHYLAXIS
     Dosage: 100 UG, QD
     Route: 048
     Dates: start: 20100625
  11. ESTER C [Concomitant]
     Indication: PROPHYLAXIS
     Dosage: 500 UG, QD
     Route: 048
     Dates: start: 20100625
  12. NORVASC [Concomitant]
     Active Substance: AMLODIPINE BESYLATE
     Indication: HYPERTENSION
     Dosage: 5 MG, QD
     Route: 048
     Dates: start: 20100625
  13. CHOLECALCIFEROL [Concomitant]
     Active Substance: CHOLECALCIFEROL
     Indication: PROPHYLAXIS
     Dosage: 1000 UNK, QD
     Route: 048
     Dates: start: 20100625
  14. CALTRATE 600+D [Concomitant]
     Indication: PROPHYLAXIS
     Dosage: 600/400, UNK, QD
     Route: 048
     Dates: start: 20100625
  15. LIORESAL [Concomitant]
     Active Substance: BACLOFEN
     Indication: MULTIPLE SCLEROSIS
     Dosage: 30 MG, TID
     Route: 048
     Dates: start: 20140619
  16. VAGIFEM [Concomitant]
     Active Substance: ESTRADIOL
     Indication: MENOPAUSE
     Dosage: 10 MCG,  ONE TAB (M, W, F)
     Route: 067
     Dates: start: 20101118, end: 20171018
  17. MYRBETRIQ [Concomitant]
     Active Substance: MIRABEGRON
     Indication: URINARY RETENTION
     Dosage: 25 MG, QD
     Route: 048
     Dates: start: 20151022
  18. LIDOCAINE. [Concomitant]
     Active Substance: LIDOCAINE
     Indication: PRODUCT USED FOR UNKNOWN INDICATION
     Dosage: 2 %, PRN
     Route: 065

REACTIONS (1)
  - Bowen^s disease [Recovered/Resolved]

NARRATIVE: CASE EVENT DATE: 20200317
